FAERS Safety Report 8845433 (Version 1)
Quarter: 2012Q4

REPORT INFORMATION
  Report Type: 
  Country: US (occurrence: US)
  Receive Date: 20121017
  Receipt Date: 20121017
  Transmission Date: 20130627
  Serious: No
  Sender: FDA-Public Use
  Company Number: US-PFIZER INC-2012257342

PATIENT
  Sex: Female

DRUGS (2)
  1. ADVIL PM [Suspect]
     Dosage: UNK
  2. ADVIL PM [Suspect]
     Dosage: UNK, every four hours

REACTIONS (2)
  - Inappropriate schedule of drug administration [Unknown]
  - Feeling abnormal [Unknown]
